FAERS Safety Report 20615027 (Version 1)
Quarter: 2022Q1

REPORT INFORMATION
  Report Type: Spontaneous
  Country: US (occurrence: US)
  Receive Date: 20220321
  Receipt Date: 20220321
  Transmission Date: 20220423
  Serious: No
  Sender: FDA-Public Use
  Company Number: US-SA-SAC20220311000719

PATIENT
  Age: 56 Year
  Sex: Female

DRUGS (3)
  1. DUPIXENT [Suspect]
     Active Substance: DUPILUMAB
     Indication: Dermatitis atopic
     Dosage: 600 MG, 1X
     Route: 058
     Dates: start: 20220303, end: 20220303
  2. DUPIXENT [Suspect]
     Active Substance: DUPILUMAB
     Dosage: 300 MG, QOW
     Route: 058
  3. CELEBREX [Concomitant]
     Active Substance: CELECOXIB
     Dosage: 200 MG, BID
     Dates: start: 20220307

REACTIONS (7)
  - Joint stiffness [Recovering/Resolving]
  - Joint swelling [Unknown]
  - Back pain [Recovering/Resolving]
  - Groin pain [Recovering/Resolving]
  - Pain [Recovering/Resolving]
  - Pain in extremity [Recovering/Resolving]
  - Condition aggravated [Unknown]

NARRATIVE: CASE EVENT DATE: 20220305
